FAERS Safety Report 4474636-6 (Version None)
Quarter: 2004Q4

REPORT INFORMATION
  Report Type: 
  Country: None (occurrence: None)
  Receive Date: 20041012
  Receipt Date: 20040930
  Transmission Date: 20050328
  Serious: Yes (Death)
  Sender: FDA-Public Use
  Company Number: 2004236823GB

PATIENT
  Sex: Female

DRUGS (1)
  1. DOXORUBICIN SOLUTION FOR INJECTION(DOXORUBICIN HYDROCHLORIDE) SOLUTION [Suspect]
     Indication: OVARIAN CANCER
     Dosage: IV
     Route: 042

REACTIONS (2)
  - MUCOSAL INFLAMMATION [None]
  - NEUTROPENIC SEPSIS [None]
